FAERS Safety Report 6031446-6 (Version None)
Quarter: 2009Q1

REPORT INFORMATION
  Report Type: 
  Country: None (occurrence: None)
  Receive Date: 20090108
  Receipt Date: 20081224
  Transmission Date: 20090719
  Serious: Yes (Disabling)
  Sender: FDA-Public Use
  Company Number: JP-ASTRAZENECA-2008AC03431

PATIENT
  Age: 49 Year
  Sex: Female
  Weight: 57 kg

DRUGS (7)
  1. ROPIVACAINE [Suspect]
     Indication: ANAESTHESIA
     Route: 008
  2. ROPIVACAINE [Suspect]
     Indication: OVARIAN OPERATION
     Route: 008
  3. ROPIVACAINE [Suspect]
     Dosage: 4 ML/HOUR
  4. ROPIVACAINE [Suspect]
     Dosage: 4 ML/HOUR
  5. MEPIVACAINE HCL [Concomitant]
     Indication: ANAESTHESIA
     Route: 008
  6. MEPIVACAINE HCL [Concomitant]
     Indication: OVARIAN OPERATION
     Route: 008
  7. FENTANYL-100 [Concomitant]
     Indication: ANAESTHESIA
     Dosage: 3 UG/ML AT 4 ML/HOUR

REACTIONS (4)
  - CATHETER SITE PAIN [None]
  - INCORRECT ROUTE OF DRUG ADMINISTRATION [None]
  - NEUROPATHY PERIPHERAL [None]
  - PERIPHERAL NERVE INJURY [None]
